FAERS Safety Report 8596398 (Version 12)
Quarter: 2013Q2

REPORT INFORMATION
  Report Type: Spontaneous
  Country: CA (occurrence: CA)
  Receive Date: 20120605
  Receipt Date: 20130415
  Transmission Date: 20140414
  Serious: Yes (Hospitalization, Other)
  Sender: FDA-Public Use
  Company Number: PHHY2011CA55236

PATIENT
  Age: 78 Year
  Sex: Female

DRUGS (2)
  1. SANDOSTATIN LAR [Suspect]
     Indication: CARCINOID TUMOUR OF THE SMALL BOWEL
     Dosage: 50 MG, EVERY THREE WEEKS
     Route: 030
     Dates: start: 20090505
  2. ANTIBIOTICS [Concomitant]

REACTIONS (28)
  - Local swelling [Unknown]
  - Hypokinesia [Unknown]
  - Intestinal obstruction [Recovered/Resolved]
  - Abdominal pain [Not Recovered/Not Resolved]
  - Vomiting [Recovering/Resolving]
  - Neoplasm [Unknown]
  - Blood pressure diastolic decreased [Unknown]
  - Blood pressure systolic increased [Unknown]
  - Arthritis [Recovering/Resolving]
  - Blood test abnormal [Unknown]
  - Injection site swelling [Unknown]
  - Osteoarthritis [Not Recovered/Not Resolved]
  - Arthropathy [Unknown]
  - Skin tightness [Unknown]
  - Fall [Unknown]
  - Contusion [Recovering/Resolving]
  - Pain in extremity [Unknown]
  - Epistaxis [Unknown]
  - Arthralgia [Unknown]
  - Pain [Unknown]
  - Skin warm [Unknown]
  - Dry skin [Unknown]
  - Weight decreased [Unknown]
  - Erythema [Unknown]
  - Diarrhoea [Recovering/Resolving]
  - Abdominal pain lower [Unknown]
  - Injection site pain [Unknown]
  - Flatulence [Unknown]
